FAERS Safety Report 8391194-4 (Version None)
Quarter: 2012Q2

REPORT INFORMATION
  Report Type: 
  Country: None (occurrence: None)
  Receive Date: 20120529
  Receipt Date: 20120524
  Transmission Date: 20120825
  Serious: Yes (Life-Threatening, Hospitalization)
  Sender: FDA-Public Use
  Company Number: BR-ASTRAZENECA-2012SE33895

PATIENT
  Age: 74 Year
  Sex: Female
  Weight: 100 kg

DRUGS (3)
  1. ATACAND [Suspect]
     Route: 048
  2. CARVEDILAT [Concomitant]
     Indication: ARRHYTHMIA
     Route: 048
  3. ATACAND [Suspect]
     Indication: HYPERTENSION
     Route: 048

REACTIONS (2)
  - WEIGHT DECREASED [None]
  - PULMONARY EMBOLISM [None]
